FAERS Safety Report 20567112 (Version 1)
Quarter: 2022Q1

REPORT INFORMATION
  Report Type: Spontaneous
  Country: US (occurrence: None)
  Receive Date: 20220308
  Receipt Date: 20220308
  Transmission Date: 20220424
  Serious: No
  Sender: FDA-Public Use
  Company Number: None

PATIENT

DRUGS (1)
  1. ZONISAMIDE [Suspect]
     Active Substance: ZONISAMIDE

REACTIONS (4)
  - Documented hypersensitivity to administered product [None]
  - Contraindicated product administered [None]
  - Device computer issue [None]
  - Contraindicated product prescribed [None]
